FAERS Safety Report 16642336 (Version 1)
Quarter: 2019Q3

REPORT INFORMATION
  Report Type: Spontaneous
  Country: GB (occurrence: GB)
  Receive Date: 20190729
  Receipt Date: 20190729
  Transmission Date: 20191004
  Serious: Yes (Disabling)
  Sender: FDA-Public Use
  Company Number: GB-PFIZER INC-2019318897

PATIENT
  Age: 46 Year
  Sex: Female
  Weight: 84 kg

DRUGS (4)
  1. NEDITOL [Concomitant]
     Active Substance: TOLTERODINE
     Dosage: 1 DF, 1X/DAY
     Dates: start: 20180427
  2. DESOGESTREL [Concomitant]
     Active Substance: DESOGESTREL
     Dosage: 1 DF, 1X/DAY
     Dates: start: 20180427
  3. VENLAFAXINE HCL [Suspect]
     Active Substance: VENLAFAXINE HYDROCHLORIDE
     Dosage: 37.5 MG, 1X/DAY
     Dates: start: 20190604
  4. DOCUSATE SODIUM. [Concomitant]
     Active Substance: DOCUSATE SODIUM
     Dosage: TAKE ONE 1-4 TIMES/DAY
     Dates: start: 20180427

REACTIONS (3)
  - Vision blurred [Recovered/Resolved]
  - Somnolence [Recovered/Resolved]
  - Nausea [Recovered/Resolved]

NARRATIVE: CASE EVENT DATE: 20190614
